FAERS Safety Report 22751570 (Version 5)
Quarter: 2023Q4

REPORT INFORMATION
  Report Type: Report from Study
  Country: CA (occurrence: CA)
  Receive Date: 20230726
  Receipt Date: 20231027
  Transmission Date: 20240110
  Serious: Yes (Other)
  Sender: FDA-Public Use
  Company Number: CA-JNJFOC-20230735012

PATIENT
  Age: 33 Year
  Sex: Male
  Weight: 73 kg

DRUGS (8)
  1. REMICADE [Suspect]
     Active Substance: INFLIXIMAB
     Indication: Colitis ulcerative
     Dosage: INFUSION RECEIVED ON 27-JUL-2023
     Route: 041
     Dates: start: 20230711
  2. REMICADE [Suspect]
     Active Substance: INFLIXIMAB
     Dosage: 10 MG/KG REQUESTED. ON 24-AUG-2023, PATIENT RECEIVED 2ND INFLIXIMAB INFUSION AT 10 MG/KG AND PARTIAL
     Route: 041
     Dates: start: 20230824
  3. REMICADE [Suspect]
     Active Substance: INFLIXIMAB
     Route: 041
     Dates: start: 20230906, end: 20230927
  4. PREDNISONE [Concomitant]
     Active Substance: PREDNISONE
     Indication: Product used for unknown indication
     Route: 065
  5. LORAZEPAM [Concomitant]
     Active Substance: LORAZEPAM
     Indication: Product used for unknown indication
     Route: 065
  6. ZOPICLONE [Concomitant]
     Active Substance: ZOPICLONE
     Indication: Product used for unknown indication
     Route: 065
  7. IRON [Concomitant]
     Active Substance: IRON
     Indication: Product used for unknown indication
     Route: 065
  8. BUDESONIDE [Concomitant]
     Active Substance: BUDESONIDE
     Indication: Product used for unknown indication
     Dosage: 9MG PO OD
     Route: 048

REACTIONS (5)
  - Cytomegalovirus infection [Unknown]
  - Colitis ulcerative [Not Recovered/Not Resolved]
  - Weight decreased [Unknown]
  - Drug ineffective [Unknown]
  - Off label use [Unknown]

NARRATIVE: CASE EVENT DATE: 20230101
